FAERS Safety Report 8470845-X (Version None)
Quarter: 2012Q2

REPORT INFORMATION
  Report Type: 
  Country: None (occurrence: None)
  Receive Date: 20120627
  Receipt Date: 20120619
  Transmission Date: 20120825
  Serious: Yes (Congenital Anomaly)
  Sender: FDA-Public Use
  Company Number: DE-ASTELLAS-2012EU004079

PATIENT
  Sex: Female
  Weight: 6.7 kg

DRUGS (6)
  1. TACROLIMUS [Suspect]
     Dosage: 0.8 MG, UID/QD
     Route: 065
     Dates: start: 20120527
  2. TACROLIMUS [Suspect]
     Dosage: 0.6 MG, UID/QD
     Route: 065
     Dates: start: 20120531
  3. TACROLIMUS [Suspect]
     Dosage: 0.6 MG, BID
     Route: 065
     Dates: start: 20120601
  4. TACROLIMUS [Suspect]
     Indication: TRANSPLANT REJECTION
     Dosage: 1 MG, BID
     Route: 065
     Dates: start: 20120526
  5. TACROLIMUS [Suspect]
     Dosage: 0.8 MG, UID/QD
     Route: 065
     Dates: start: 20120528
  6. TACROLIMUS [Suspect]
     Dosage: 0.6 MG, UID/QD
     Route: 065
     Dates: start: 20120529

REACTIONS (1)
  - HEPATIC ARTERY OCCLUSION [None]
